FAERS Safety Report 7502704-0 (Version None)
Quarter: 2011Q2

REPORT INFORMATION
  Report Type: 
  Country: None (occurrence: None)
  Receive Date: 20110525
  Receipt Date: 20110520
  Transmission Date: 20111010
  Serious: Yes (Death, Hospitalization, Other)
  Sender: FDA-Public Use
  Company Number: FR-PFIZER INC-2011102787

PATIENT
  Age: 46 Year
  Sex: Female

DRUGS (5)
  1. CELLCEPT [Suspect]
     Dosage: 500MG MORNING, 250MG AT NIGHT
     Route: 048
     Dates: start: 20040820
  2. PREDNISONE [Suspect]
     Indication: IMMUNOSUPPRESSION
     Dosage: UNK
     Route: 048
     Dates: start: 20090820
  3. NEORAL [Suspect]
     Indication: IMMUNOSUPPRESSION
     Dosage: UNK
     Route: 048
     Dates: start: 20040820
  4. SIROLIMUS [Suspect]
     Indication: IMMUNOSUPPRESSION
     Dosage: UNK
     Dates: end: 20041026
  5. PROGRAF [Suspect]
     Indication: IMMUNOSUPPRESSION
     Dosage: 2 MG, 2X/DAY
     Route: 048
     Dates: start: 20041026

REACTIONS (6)
  - BLOOD CREATININE INCREASED [None]
  - LUNG NEOPLASM MALIGNANT [None]
  - DISEASE PROGRESSION [None]
  - OEDEMA [None]
  - HYPERURICAEMIA [None]
  - ANAEMIA [None]
